FAERS Safety Report 8445884-5 (Version None)
Quarter: 2012Q2

REPORT INFORMATION
  Report Type: 
  Country: None (occurrence: None)
  Receive Date: 20120323
  Receipt Date: 20111221
  Transmission Date: 20120825
  Serious: Yes (Other)
  Sender: FDA-Public Use
  Company Number: 163-21880-110582671

PATIENT
  Age: 70 Year
  Sex: Female
  Weight: 46.2669 kg

DRUGS (10)
  1. ASPIRIN [Concomitant]
  2. LIPITOR [Concomitant]
  3. COREG [Concomitant]
  4. VITAMIN D [Concomitant]
  5. REVLIMID [Suspect]
     Indication: MULTIPLE MYELOMA
     Dosage: 5 MG, QOD, PO
     Route: 048
     Dates: start: 20110121
  6. LISINOPRIL [Concomitant]
  7. PRILOSEC [Concomitant]
  8. ALPRAZOLAM [Concomitant]
  9. CALCIUM CARBONATE [Concomitant]
  10. NEXIUM [Concomitant]

REACTIONS (3)
  - INSOMNIA [None]
  - WEIGHT DECREASED [None]
  - DYSGEUSIA [None]
